FAERS Safety Report 15410701 (Version 1)
Quarter: 2018Q3

REPORT INFORMATION
  Report Type: Spontaneous
  Country: US (occurrence: US)
  Receive Date: 20180919
  Receipt Date: 20180919
  Transmission Date: 20181010
  Serious: Yes (Other)
  Sender: FDA-Public Use
  Company Number: None

PATIENT
  Age: 70 Year
  Sex: Female
  Weight: 67.5 kg

DRUGS (2)
  1. B 12 CITTICAL ALIVE CHEWABLE VITAMINS [Concomitant]
  2. LEVOTHYROXINE SODIUM 50 MCG [Suspect]
     Active Substance: LEVOTHYROXINE SODIUM
     Indication: THYROID DISORDER
     Dosage: ?          QUANTITY:1 DF DOSAGE FORM;?
     Route: 048
     Dates: start: 20180705, end: 20180912

REACTIONS (7)
  - Thinking abnormal [None]
  - Feeling abnormal [None]
  - Gait disturbance [None]
  - Disturbance in attention [None]
  - Dizziness [None]
  - Product quality issue [None]
  - Abdominal discomfort [None]

NARRATIVE: CASE EVENT DATE: 20180903
